FAERS Safety Report 5565854-4 (Version None)
Quarter: 2007Q4

REPORT INFORMATION
  Report Type: 
  Country: None (occurrence: None)
  Receive Date: 20071213
  Receipt Date: 20071130
  Transmission Date: 20080405
  Serious: Yes (Hospitalization, Congenital Anomaly)
  Sender: FDA-Public Use
  Company Number: 2007JP004859

PATIENT
  Age: 5 Day
  Sex: Female
  Weight: 2.4 kg

DRUGS (2)
  1. PROGRAF [Suspect]
     Dosage: TRANSPLACENTAL
     Route: 064
  2. MEDROL [Concomitant]

REACTIONS (7)
  - CAESAREAN SECTION [None]
  - CONGENITAL RENAL CYST [None]
  - DRUG EXPOSURE DURING PREGNANCY [None]
  - METABOLIC ACIDOSIS [None]
  - RENAL FAILURE CHRONIC [None]
  - RENAL HYPOPLASIA [None]
  - SMALL FOR DATES BABY [None]
